FAERS Safety Report 5618824-1 (Version None)
Quarter: 2008Q1

REPORT INFORMATION
  Report Type: 
  Country: None (occurrence: None)
  Receive Date: 20080207
  Receipt Date: 20080125
  Transmission Date: 20080703
  Serious: Yes (Hospitalization)
  Sender: FDA-Public Use
  Company Number: FR-ELI_LILLY_AND_COMPANY-FR200801005704

PATIENT
  Age: 87 Year
  Sex: Female

DRUGS (3)
  1. FORTEO [Suspect]
     Indication: OSTEOPOROSIS
     Dosage: 20 UG, DAILY (1/D)
     Route: 058
     Dates: start: 20060816
  2. ZAMUDOL [Concomitant]
     Indication: PAIN
     Dosage: 150 MG, DAILY (1/D)
  3. CORTANCYL [Concomitant]

REACTIONS (1)
  - DISLOCATION OF JOINT PROSTHESIS [None]
